FAERS Safety Report 6643803-5 (Version None)
Quarter: 2010Q1

REPORT INFORMATION
  Report Type: 
  Country: None (occurrence: None)
  Receive Date: 20100322
  Receipt Date: 20100308
  Transmission Date: 20100710
  Serious: Yes (Hospitalization, Other)
  Sender: FDA-Public Use
  Company Number: US-ELI_LILLY_AND_COMPANY-US201003003046

PATIENT
  Sex: Female

DRUGS (10)
  1. FORTEO [Suspect]
     Indication: OSTEOPOROSIS
     Dosage: 20 UG, DAILY (1/D)
     Dates: start: 20090101
  2. FORTEO [Suspect]
     Dosage: 20 UG, DAILY (1/D)
     Dates: start: 20090501
  3. LIPITOR [Concomitant]
     Dosage: 10 MG, UNK
  4. ATENOLOL [Concomitant]
     Dosage: 25 MG, UNK
  5. SERTRALINE HYDROCHLORIDE [Concomitant]
     Dosage: 25 MG, UNK
  6. MULTIVITAMIN [Concomitant]
  7. CALTRATE 600 + D [Concomitant]
  8. FOLIC ACID [Concomitant]
     Dosage: 400 UG, UNK
  9. VITAMIN B COMPLEX CAP [Concomitant]
  10. VITAMIN D [Concomitant]
     Dosage: 1600 IU, UNK

REACTIONS (8)
  - ACCIDENT [None]
  - ASTHENIA [None]
  - CLOSTRIDIAL INFECTION [None]
  - FATIGUE [None]
  - INFECTION [None]
  - LIMB INJURY [None]
  - MUSCULAR WEAKNESS [None]
  - OEDEMA PERIPHERAL [None]
